FAERS Safety Report 8045827-2 (Version None)
Quarter: 2012Q1

REPORT INFORMATION
  Report Type: 
  Country: None (occurrence: None)
  Receive Date: 20120113
  Receipt Date: 20120110
  Transmission Date: 20120608
  Serious: Yes (Other)
  Sender: FDA-Public Use
  Company Number: US-ROCHE-791126

PATIENT
  Sex: Male
  Weight: 90.8 kg

DRUGS (3)
  1. ACCUTANE [Suspect]
     Route: 065
     Dates: start: 19980324, end: 19980801
  2. ACETAMINOPHEN [Concomitant]
  3. ACCUTANE [Suspect]
     Indication: ACNE
     Route: 065
     Dates: start: 19950216, end: 19950701

REACTIONS (12)
  - CYST [None]
  - EMOTIONAL DISTRESS [None]
  - DRY SKIN [None]
  - ARTHRALGIA [None]
  - RHINORRHOEA [None]
  - HEADACHE [None]
  - MELANOCYTIC NAEVUS [None]
  - SMALL INTESTINAL OBSTRUCTION [None]
  - CROHN'S DISEASE [None]
  - DRY EYE [None]
  - EPISTAXIS [None]
  - LIP DRY [None]
